FAERS Safety Report 7966425-2 (Version None)
Quarter: 2011Q4

REPORT INFORMATION
  Report Type: 
  Country: None (occurrence: None)
  Receive Date: 20111208
  Receipt Date: 20111125
  Transmission Date: 20120403
  Serious: Yes (Other)
  Sender: FDA-Public Use
  Company Number: US-ELI_LILLY_AND_COMPANY-US201103008781

PATIENT
  Sex: Male

DRUGS (3)
  1. FORTEO [Suspect]
     Dosage: 20 UG, QD
  2. FORTEO [Suspect]
     Dosage: 20 UG, QD
  3. FORTEO [Suspect]
     Indication: OSTEOPOROSIS
     Dosage: 20 UG, QD
     Route: 065

REACTIONS (13)
  - WEIGHT INCREASED [None]
  - MUSCULOSKELETAL STIFFNESS [None]
  - CARDIAC OPERATION [None]
  - CHEST PAIN [None]
  - ANXIETY [None]
  - TENDERNESS [None]
  - WOUND HAEMORRHAGE [None]
  - BACK PAIN [None]
  - SPLINTER [None]
  - JOINT STIFFNESS [None]
  - DYSPNOEA [None]
  - PAIN [None]
  - FEELING ABNORMAL [None]
